FAERS Safety Report 6615774-9 (Version None)
Quarter: 2010Q1

REPORT INFORMATION
  Report Type: 
  Country: None (occurrence: None)
  Receive Date: 20100305
  Receipt Date: 20100224
  Transmission Date: 20100710
  Serious: Yes (Hospitalization, Other)
  Sender: FDA-Public Use
  Company Number: US-AMGEN-QUU362127

PATIENT
  Sex: Male
  Weight: 64.5 kg

DRUGS (8)
  1. ENBREL [Suspect]
     Indication: RHEUMATOID ARTHRITIS
     Route: 058
     Dates: start: 20040416
  2. BENICAR [Suspect]
  3. DILANTIN [Suspect]
  4. METHOTREXATE [Concomitant]
     Route: 048
  5. AVODART [Concomitant]
  6. ASPIRIN [Concomitant]
  7. ZOCOR [Concomitant]
  8. MUCINEX [Concomitant]

REACTIONS (13)
  - AORTIC STENOSIS [None]
  - BENIGN PROSTATIC HYPERPLASIA [None]
  - CONVULSION [None]
  - CORONARY ARTERY DISEASE [None]
  - DIZZINESS [None]
  - EXTRASYSTOLES [None]
  - HYPOTENSION [None]
  - MYOCARDIAL INFARCTION [None]
  - PERIPHERAL VASCULAR DISORDER [None]
  - RENAL FAILURE ACUTE [None]
  - TONGUE HAEMORRHAGE [None]
  - VENTRICULAR FIBRILLATION [None]
  - VENTRICULAR TACHYCARDIA [None]
